FAERS Safety Report 6189918-X (Version None)
Quarter: 2009Q2

REPORT INFORMATION
  Report Type: 
  Country: None (occurrence: None)
  Receive Date: 20090512
  Receipt Date: 20090512
  Transmission Date: 20091009
  Serious: Yes (Life-Threatening, Hospitalization)
  Sender: FDA-Public Use
  Company Number: None

PATIENT
  Age: 40 Year
  Sex: Male
  Weight: 83.9154 kg

DRUGS (1)
  1. GUAIFENESIN/ P-EPHED HCL 250/ 120 D HCL ETHEX [Suspect]
     Indication: SINUS DISORDER
     Dosage: ONE CAPSULE DAILY PO
     Route: 048
     Dates: start: 20040204, end: 20040719

REACTIONS (13)
  - ANGER [None]
  - BACTERIAL INFECTION [None]
  - BLOOD PRESSURE ABNORMAL [None]
  - DEPRESSION [None]
  - FATIGUE [None]
  - HAEMORRHAGIC STROKE [None]
  - IMPAIRED WORK ABILITY [None]
  - INJURY [None]
  - JUDGEMENT IMPAIRED [None]
  - MALAISE [None]
  - NASOPHARYNGITIS [None]
  - QUALITY OF LIFE DECREASED [None]
  - VIRAL INFECTION [None]
